FAERS Safety Report 20440417 (Version 2)
Quarter: 2022Q1

REPORT INFORMATION
  Report Type: Spontaneous
  Country: US (occurrence: US)
  Receive Date: 20220207
  Receipt Date: 20220222
  Transmission Date: 20220423
  Serious: Yes (Hospitalization)
  Sender: FDA-Public Use
  Company Number: US-ELI_LILLY_AND_COMPANY-US202202000428

PATIENT
  Sex: Female
  Weight: 82.55 kg

DRUGS (3)
  1. TADALAFIL [Suspect]
     Active Substance: TADALAFIL
     Indication: Pulmonary arterial hypertension
     Dosage: UNK UNK, UNKNOWN
     Route: 065
  2. TYVASO [Suspect]
     Active Substance: TREPROSTINIL
     Indication: Pulmonary arterial hypertension
     Dosage: 3-12 BREATHS, QID
     Route: 055
     Dates: start: 20211108
  3. TYVASO [Suspect]
     Active Substance: TREPROSTINIL
     Dosage: 3-12 BREATHS, QID
     Route: 055

REACTIONS (2)
  - Pericardial effusion [Unknown]
  - Pulmonary oedema [Unknown]
